FAERS Safety Report 6778779-3 (Version None)
Quarter: 2010Q2

REPORT INFORMATION
  Report Type: 
  Country: None (occurrence: None)
  Receive Date: 20100618
  Receipt Date: 20100609
  Transmission Date: 20101027
  Serious: Yes (Other)
  Sender: FDA-Public Use
  Company Number: CA-BAYER-201028147GPV

PATIENT

DRUGS (2)
  1. SORAFENIB [Suspect]
     Indication: BREAST CANCER METASTATIC
     Dosage: 8 CYCLES
  2. VINORELBINE [Suspect]
     Indication: BREAST CANCER METASTATIC
     Dosage: DAYS 1, 8 EVERY 21, 8 CYCLES

REACTIONS (1)
  - EJECTION FRACTION DECREASED [None]
